FAERS Safety Report 7377863-3 (Version None)
Quarter: 2011Q1

REPORT INFORMATION
  Report Type: 
  Country: None (occurrence: None)
  Receive Date: 20110328
  Receipt Date: 20110317
  Transmission Date: 20110831
  Serious: Yes (Death, Hospitalization, Other)
  Sender: FDA-Public Use
  Company Number: BR-NOVOPROD-324745

PATIENT
  Sex: Female

DRUGS (2)
  1. ACTRAPID [Suspect]
     Indication: DIABETES MELLITUS
     Route: 065
  2. PROTAPHANE [Suspect]
     Indication: DIABETES MELLITUS
     Route: 065

REACTIONS (14)
  - POSTOPERATIVE WOUND INFECTION [None]
  - PRE-ECLAMPSIA [None]
  - POLYHYDRAMNIOS [None]
  - DRUG EXPOSURE DURING PREGNANCY [None]
  - PREMATURE LABOUR [None]
  - DIABETES MELLITUS INADEQUATE CONTROL [None]
  - DIABETIC KETOACIDOSIS [None]
  - DEATH [None]
  - PREMATURE RUPTURE OF MEMBRANES [None]
  - COMPLICATION OF DELIVERY [None]
  - PLACENTAL INSUFFICIENCY [None]
  - ABORTION SPONTANEOUS [None]
  - STILLBIRTH [None]
  - ECLAMPSIA [None]
